FAERS Safety Report 8341221-5 (Version None)
Quarter: 2012Q2

REPORT INFORMATION
  Report Type: 
  Country: None (occurrence: None)
  Receive Date: 20120507
  Receipt Date: 20120426
  Transmission Date: 20120825
  Serious: Yes (Hospitalization)
  Sender: FDA-Public Use
  Company Number: CA-JNJFOC-20120413242

PATIENT
  Sex: Female
  Weight: 96 kg

DRUGS (6)
  1. REMICADE [Suspect]
     Indication: CROHN'S DISEASE
     Dosage: 40 INFUSIONS TOTALLY
     Route: 042
     Dates: start: 20070514
  2. SCOPOLAMINE [Concomitant]
     Route: 065
  3. PREVACID [Concomitant]
     Route: 065
  4. LOMOTIL [Concomitant]
     Route: 065
  5. EFFEXOR [Concomitant]
     Route: 065
  6. METFORMIN HCL [Concomitant]
     Route: 065

REACTIONS (1)
  - HYSTERECTOMY [None]
